FAERS Safety Report 18769447 (Version 2)
Quarter: 2021Q1

REPORT INFORMATION
  Report Type: Report from Study
  Country: DO (occurrence: DO)
  Receive Date: 20210121
  Receipt Date: 20210319
  Transmission Date: 20210419
  Serious: Yes (Other)
  Sender: FDA-Public Use
  Company Number: NVSC2020DO260790

PATIENT
  Age: 31 Year
  Sex: Female

DRUGS (7)
  1. KISQALI [Suspect]
     Active Substance: RIBOCICLIB
     Indication: BREAST CANCER
     Dosage: 200 MG
     Route: 065
     Dates: start: 20200916
  2. ZOLEDRONIC ACID [Suspect]
     Active Substance: ZOLEDRONIC ACID
     Indication: PRODUCT USED FOR UNKNOWN INDICATION
     Dosage: UNK
     Route: 065
  3. ZOLEDRONIC ACID [Suspect]
     Active Substance: ZOLEDRONIC ACID
     Dosage: 4TH DOSE
     Route: 065
     Dates: start: 20210224
  4. KISQALI [Suspect]
     Active Substance: RIBOCICLIB
     Dosage: 600 MG, TID
     Route: 048
     Dates: start: 20200916
  5. KISQALI [Suspect]
     Active Substance: RIBOCICLIB
     Dosage: 600 MG, TID
     Route: 048
     Dates: start: 20201116
  6. KISQALI [Suspect]
     Active Substance: RIBOCICLIB
     Dosage: 1 DF, QD
     Route: 065
  7. KISQALI [Suspect]
     Active Substance: RIBOCICLIB
     Dosage: 600 MG, Q8H
     Route: 048
     Dates: start: 20201001

REACTIONS (13)
  - Feeling abnormal [Unknown]
  - Pyrexia [Unknown]
  - Dizziness [Unknown]
  - Infection [Unknown]
  - Off label use [Unknown]
  - Metastases to lung [Unknown]
  - Musculoskeletal discomfort [Unknown]
  - Hypoaesthesia oral [Unknown]
  - Pain [Unknown]
  - Vomiting [Unknown]
  - Pulmonary oedema [Unknown]
  - Asphyxia [Unknown]
  - Tachycardia [Unknown]

NARRATIVE: CASE EVENT DATE: 202010
